FAERS Safety Report 6991993-7 (Version None)
Quarter: 2010Q3

REPORT INFORMATION
  Report Type: 
  Country: None (occurrence: None)
  Receive Date: 20100904
  Receipt Date: 20100823
  Transmission Date: 20110219
  Serious: Yes (Other)
  Sender: FDA-Public Use
  Company Number: CRC-10-143

PATIENT
  Age: 67 Year
  Sex: Female
  Weight: 124.7392 kg

DRUGS (5)
  1. ALENDRONATE SODIUM [Suspect]
     Indication: OSTEOPOROSIS
     Dosage: ONE WEEKLY; ORAL
     Route: 048
     Dates: start: 20100807, end: 20100814
  2. ASPIRIN [Concomitant]
  3. FISH OIL [Concomitant]
  4. CARVEDILOL [Concomitant]
  5. MULTIPLE VITAMINS [Concomitant]

REACTIONS (5)
  - ABDOMINAL PAIN UPPER [None]
  - CHEST PAIN [None]
  - CONSTIPATION [None]
  - DYSPEPSIA [None]
  - HEART RATE INCREASED [None]
